FAERS Safety Report 9613081 (Version 1)
Quarter: 2013Q4

REPORT INFORMATION
  Report Type: Spontaneous
  Country: PL (occurrence: PL)
  Receive Date: 20131010
  Receipt Date: 20131010
  Transmission Date: 20140711
  Serious: Yes (Other)
  Sender: FDA-Public Use
  Company Number: PL-CELGENEUS-129-20785-13100542

PATIENT
  Age: 70 Year
  Sex: Male
  Weight: 82 kg

DRUGS (6)
  1. THALIDOMIDE [Suspect]
     Indication: PLASMA CELL MYELOMA
     Route: 048
     Dates: start: 20090824, end: 20100310
  2. ACETYLSALICYLIC ACID [Concomitant]
     Indication: CARDIAC FAILURE
     Dosage: 100 MILLIGRAM
     Route: 048
     Dates: start: 200910
  3. KARWEDILOL [Concomitant]
     Indication: HYPERTENSION
     Dosage: 12.5 MILLIGRAM
     Route: 048
     Dates: start: 200910
  4. KARWEDILOL [Concomitant]
     Dosage: 3.125 MILLIGRAM
     Route: 048
     Dates: start: 200910
  5. CYCLOPHOSPHAMIDE [Concomitant]
     Indication: PLASMA CELL MYELOMA
     Route: 065
     Dates: start: 20090824, end: 20100310
  6. DEXAMETHASONE [Concomitant]
     Indication: PLASMA CELL MYELOMA
     Route: 065
     Dates: start: 20090824, end: 20100310

REACTIONS (2)
  - Adenocarcinoma of colon [Unknown]
  - Sick sinus syndrome [Unknown]
